FAERS Safety Report 5240647-6 (Version None)
Quarter: 2007Q1

REPORT INFORMATION
  Report Type: 
  Country: None (occurrence: None)
  Receive Date: 20070219
  Receipt Date: 20070209
  Transmission Date: 20070707
  Serious: Yes (Disabling)
  Sender: FDA-Public Use
  Company Number: JP-MERCK-0702USA00293

PATIENT
  Age: 77 Year
  Sex: Female
  Weight: 64 kg

DRUGS (2)
  1. SINGULAIR [Suspect]
     Indication: ASTHMA
     Route: 048
     Dates: start: 20060403, end: 20061016
  2. MEQUITAZINE [Suspect]
     Indication: PRURITUS
     Route: 048
     Dates: start: 20060818, end: 20061016

REACTIONS (4)
  - ANOREXIA [None]
  - DYSGEUSIA [None]
  - GLOSSITIS [None]
  - THIRST [None]
